FAERS Safety Report 10166097 (Version 1)
Quarter: 2014Q2

REPORT INFORMATION
  Report Type: Spontaneous
  Country: US (occurrence: US)
  Receive Date: 20140512
  Receipt Date: 20140512
  Transmission Date: 20141212
  Serious: No
  Sender: FDA-Public Use
  Company Number: US-US-EMD SERONO, INC.-7289200

PATIENT
  Sex: Female

DRUGS (19)
  1. REBIF [Suspect]
     Indication: PRODUCT USED FOR UNKNOWN INDICATION
     Route: 058
  2. PROTONIX                           /01263201/ [Concomitant]
     Indication: PRODUCT USED FOR UNKNOWN INDICATION
  3. DETROL                             /01350201/ [Concomitant]
     Indication: PRODUCT USED FOR UNKNOWN INDICATION
  4. NEURONTIN [Concomitant]
     Indication: PRODUCT USED FOR UNKNOWN INDICATION
  5. TRILEPTAL [Concomitant]
     Indication: PRODUCT USED FOR UNKNOWN INDICATION
  6. NYSTATIN [Concomitant]
     Indication: PRODUCT USED FOR UNKNOWN INDICATION
  7. PROCHLORPERAZINE [Concomitant]
     Indication: PRODUCT USED FOR UNKNOWN INDICATION
  8. LISINOPRIL [Concomitant]
     Indication: PRODUCT USED FOR UNKNOWN INDICATION
  9. BACLOFEN [Concomitant]
     Indication: PRODUCT USED FOR UNKNOWN INDICATION
  10. ADVAIR [Concomitant]
     Indication: PRODUCT USED FOR UNKNOWN INDICATION
  11. AMITRIPTYLINE HCL [Concomitant]
     Indication: PRODUCT USED FOR UNKNOWN INDICATION
  12. MECLIZINE                          /00072801/ [Concomitant]
     Indication: PRODUCT USED FOR UNKNOWN INDICATION
  13. ASPIRIN                            /00002701/ [Concomitant]
     Indication: PRODUCT USED FOR UNKNOWN INDICATION
  14. LIDODERM [Concomitant]
     Indication: PRODUCT USED FOR UNKNOWN INDICATION
     Dosage: 5% PATCH
  15. FLECTOR                            /00372302/ [Concomitant]
     Indication: PRODUCT USED FOR UNKNOWN INDICATION
     Dosage: 1.3 % PATCH
  16. PROVIGIL [Concomitant]
     Indication: PRODUCT USED FOR UNKNOWN INDICATION
  17. MAXAIR [Concomitant]
     Indication: PRODUCT USED FOR UNKNOWN INDICATION
  18. FIORICET [Concomitant]
     Indication: PRODUCT USED FOR UNKNOWN INDICATION
  19. VITAMIN D                          /00107901/ [Concomitant]
     Indication: PRODUCT USED FOR UNKNOWN INDICATION

REACTIONS (4)
  - Vitamin B12 decreased [Unknown]
  - Generalised erythema [Unknown]
  - Hepatic enzyme increased [Unknown]
  - Pruritus generalised [Unknown]
